FAERS Safety Report 23573413 (Version 1)
Quarter: 2024Q1

REPORT INFORMATION
  Report Type: Spontaneous
  Country: PL (occurrence: PL)
  Receive Date: 20240228
  Receipt Date: 20240228
  Transmission Date: 20240410
  Serious: Yes (Other)
  Sender: FDA-Public Use
  Company Number: None

PATIENT
  Age: 70 Year
  Sex: Female
  Weight: 64 kg

DRUGS (5)
  1. VECTIBIX [Suspect]
     Active Substance: PANITUMUMAB
     Indication: Rectal cancer
     Dosage: 384 MILLIGRAM (VECTIBIX AMGEN)
     Route: 040
     Dates: start: 20200303, end: 20200303
  2. LEUCOVORIN CALCIUM [Suspect]
     Active Substance: LEUCOVORIN CALCIUM
     Indication: Product used for unknown indication
     Dosage: 328 MILLIGRAM
     Route: 040
     Dates: start: 20200303, end: 20200305
  3. OXALIPLATIN [Suspect]
     Active Substance: OXALIPLATIN
     Indication: Product used for unknown indication
     Dosage: 139.4 MILLIGRAM
     Route: 040
     Dates: start: 20200303, end: 20200303
  4. FLUOROURACIL [Suspect]
     Active Substance: FLUOROURACIL
     Indication: Product used for unknown indication
     Dosage: 656 MILLIGRAM
     Route: 040
     Dates: start: 20200303, end: 20200304
  5. FLUOROURACIL [Suspect]
     Active Substance: FLUOROURACIL
     Dosage: 1988 MILLIGRAM
     Route: 040
     Dates: start: 20200303, end: 20200305

REACTIONS (1)
  - Thrombocytopenia [Recovering/Resolving]

NARRATIVE: CASE EVENT DATE: 20200317
